FAERS Safety Report 6267130-3 (Version None)
Quarter: 2009Q3

REPORT INFORMATION
  Report Type: 
  Country: None (occurrence: None)
  Receive Date: 20090714
  Receipt Date: 20090702
  Transmission Date: 20100115
  Serious: Yes (Hospitalization)
  Sender: FDA-Public Use
  Company Number: AU-PFIZER INC-2009224912

PATIENT
  Age: 59 Year

DRUGS (11)
  1. IDARUBICIN HCL [Suspect]
     Indication: ACUTE MYELOID LEUKAEMIA
     Dosage: UNK UCI, 1X/DAY
     Route: 042
     Dates: start: 20090602
  2. CYTARABINE [Suspect]
     Indication: ACUTE MYELOID LEUKAEMIA
     Dosage: DAYS 1 TO 7
     Route: 042
     Dates: start: 20090602
  3. ETOPOSIDE [Suspect]
     Indication: ACUTE MYELOID LEUKAEMIA
     Dosage: DAILY - DAYS 1 TO 5
     Route: 042
     Dates: start: 20090602
  4. PEGFILGRASTIM [Suspect]
     Indication: PROPHYLAXIS
     Dosage: 6 MG, SINGLE
     Route: 058
     Dates: start: 20090608
  5. CIPROFLOXACIN [Concomitant]
     Indication: ANTIBIOTIC PROPHYLAXIS
     Dosage: 500 MG, 2X/DAY
     Route: 048
  6. FLUCONAZOLE [Concomitant]
     Indication: ANTIFUNGAL TREATMENT
     Dosage: 400 MG, 1X/DAY
     Route: 048
     Dates: start: 20090501
  7. VALACICLOVIR [Concomitant]
     Indication: ANTIVIRAL TREATMENT
     Dosage: 500 MG, 1X/DAY
     Route: 048
     Dates: start: 20090521
  8. SOMAC [Concomitant]
     Indication: REFLUX OESOPHAGITIS
     Dosage: 40 MG, 1X/DAY
     Route: 048
     Dates: start: 20090508
  9. OROXINE [Concomitant]
     Dosage: 100 UG, 1X/DAY
     Route: 048
  10. ZOFRAN [Concomitant]
     Indication: NAUSEA
     Dosage: 4 MG, AS NEEDED
     Route: 048
     Dates: start: 20090602, end: 20090608
  11. RAMIPRIL [Concomitant]
     Indication: HYPERTENSION
     Dosage: 2.5 MG, 1X/DAY
     Route: 048

REACTIONS (2)
  - DIARRHOEA [None]
  - MALAISE [None]
